FAERS Safety Report 23731087 (Version 1)
Quarter: 2024Q2

REPORT INFORMATION
  Report Type: Other
  Country: US (occurrence: US)
  Receive Date: 20240411
  Receipt Date: 20240411
  Transmission Date: 20240716
  Serious: Yes (Death, Hospitalization)
  Sender: FDA-Public Use
  Company Number: US-ALVOGEN-2024093532

PATIENT
  Age: 19 Month
  Sex: Female

DRUGS (3)
  1. FENTANYL [Suspect]
     Active Substance: FENTANYL\FENTANYL CITRATE
     Indication: Product used for unknown indication
     Dosage: FENTANYL (NON-PRESCRIPTION)
     Route: 048
  2. TRAMADOL [Suspect]
     Active Substance: TRAMADOL\TRAMADOL HYDROCHLORIDE
     Indication: Product used for unknown indication
     Route: 048
  3. COCAINE [Suspect]
     Active Substance: COCAINE
     Indication: Product used for unknown indication
     Route: 048

REACTIONS (17)
  - Toxicity to various agents [Fatal]
  - Lethargy [Fatal]
  - Unresponsive to stimuli [Fatal]
  - Apnoea [Fatal]
  - Hypothermia [Fatal]
  - Pulmonary haemorrhage [Fatal]
  - Diabetes insipidus [Fatal]
  - Retinal haemorrhage [Fatal]
  - Craniocerebral injury [Fatal]
  - Hypoxic-ischaemic encephalopathy [Fatal]
  - Pneumonia [Fatal]
  - Ischaemia [Fatal]
  - Respiratory arrest [Fatal]
  - Cardiac arrest [Fatal]
  - Accidental exposure to product by child [Fatal]
  - Prescription drug used without a prescription [Unknown]
  - Incorrect route of product administration [Unknown]
